FAERS Safety Report 8011375-9 (Version None)
Quarter: 2011Q4

REPORT INFORMATION
  Report Type: 
  Country: None (occurrence: None)
  Receive Date: 20111222
  Receipt Date: 20111207
  Transmission Date: 20120403
  Serious: Yes (Death, Life-Threatening, Hospitalization)
  Sender: FDA-Public Use
  Company Number: 2009001180

PATIENT
  Age: 46 Year
  Sex: Female
  Weight: 71 kg

DRUGS (17)
  1. SUNITINIB MALATE [Suspect]
     Indication: NON-SMALL CELL LUNG CANCER
     Dosage: 37.5 MG, UID/QD, ORAL
     Route: 048
     Dates: start: 20071016, end: 20080211
  2. PANTOPRAZOLE [Concomitant]
  3. ISORDIL [Concomitant]
  4. METOPROLOL TARTRATE [Concomitant]
  5. FOLIC ACID [Concomitant]
  6. ASPIRIN [Concomitant]
  7. ISORDIL [Concomitant]
  8. DOMPERIDONE (DOMPERIDONE) [Concomitant]
  9. IMODIUM (SIMETICONE) [Concomitant]
  10. MINOCYCLINE HCL [Concomitant]
  11. LOPERAMIDE [Concomitant]
  12. MINOCYCLINE HCL [Concomitant]
  13. METOCLOPRAMIDE [Concomitant]
  14. LIPITOR [Concomitant]
  15. ERLOTINIB HYDROCHLORIDE [Suspect]
     Indication: NON-SMALL CELL LUNG CANCER
     Dosage: 150 MG, UID/QD, ORAL
     Route: 048
     Dates: start: 20071016, end: 20080211
  16. METOCLOPRAMIDE [Concomitant]
  17. PANTOPRAZOLE SODIUM [Concomitant]

REACTIONS (11)
  - DYSPNOEA [None]
  - HIGH DENSITY LIPOPROTEIN INCREASED [None]
  - PANCREATITIS ACUTE [None]
  - DIARRHOEA [None]
  - BLOOD CREATININE INCREASED [None]
  - DEHYDRATION [None]
  - HYPOCALCAEMIA [None]
  - ASCITES [None]
  - GASTROINTESTINAL SOUNDS ABNORMAL [None]
  - ABDOMINAL DISTENSION [None]
  - BLOOD MAGNESIUM DECREASED [None]
